FAERS Safety Report 10544582 (Version 1)
Quarter: 2014Q4

REPORT INFORMATION
  Report Type: Spontaneous
  Country: US (occurrence: US)
  Receive Date: 20141027
  Receipt Date: 20141027
  Transmission Date: 20150529
  Serious: No
  Sender: FDA-Public Use
  Company Number: US-GLAXOSMITHKLINE-US2014GSK005756

PATIENT
  Age: 40 Year
  Sex: Male

DRUGS (2)
  1. MEKINIST [Suspect]
     Active Substance: TRAMETINIB DIMETHYL SULFOXIDE
     Indication: PRODUCT USED FOR UNKNOWN INDICATION
     Dosage: 2 MG, BID
     Route: 048
     Dates: start: 20140913
  2. TAFINLAR [Concomitant]
     Active Substance: DABRAFENIB MESYLATE
     Indication: PRODUCT USED FOR UNKNOWN INDICATION
     Dosage: 100 MG, BID
     Dates: start: 20140913

REACTIONS (1)
  - Incorrect dose administered [Not Recovered/Not Resolved]
